FAERS Safety Report 9751016 (Version 1)
Quarter: 2013Q4

REPORT INFORMATION
  Report Type: Spontaneous
  Country: US (occurrence: US)
  Receive Date: 20131212
  Receipt Date: 20131212
  Transmission Date: 20140711
  Serious: No
  Sender: FDA-Public Use
  Company Number: US-TEVA-398750USA

PATIENT
  Age: 30 Year
  Sex: Female
  Weight: 85.81 kg

DRUGS (4)
  1. PARAGARD 380A [Suspect]
     Indication: CONTRACEPTION
     Route: 015
     Dates: start: 20130227, end: 20130411
  2. PARAGARD 380A [Suspect]
     Route: 015
     Dates: start: 20130411
  3. MULTIVITAMIN [Concomitant]
     Indication: SUPPLEMENTATION THERAPY
  4. CHILDRENS ASPIRIN [Concomitant]
     Indication: SUPPLEMENTATION THERAPY

REACTIONS (4)
  - Metrorrhagia [Recovered/Resolved]
  - Abdominal pain [Recovered/Resolved]
  - Metrorrhagia [Recovered/Resolved]
  - Device expulsion [Recovered/Resolved]
